FAERS Safety Report 10143124 (Version 1)
Quarter: 2014Q2

REPORT INFORMATION
  Report Type: Spontaneous
  Country: IL (occurrence: IL)
  Receive Date: 20140430
  Receipt Date: 20140430
  Transmission Date: 20141212
  Serious: Yes (Other)
  Sender: FDA-Public Use
  Company Number: IL-JNJFOC-20140417777

PATIENT
  Sex: Female

DRUGS (2)
  1. REMICADE [Suspect]
     Indication: PSORIASIS
     Route: 042
  2. REMICADE [Suspect]
     Indication: PSORIASIS
     Dosage: THIRD DOSE OF INFLIXIMAB
     Route: 042

REACTIONS (8)
  - Loss of consciousness [Unknown]
  - Fall [Unknown]
  - Head injury [Unknown]
  - Pyrexia [Unknown]
  - Pruritus [Unknown]
  - Dizziness [Unknown]
  - Nausea [Unknown]
  - Infusion related reaction [Unknown]
